FAERS Safety Report 19530951 (Version 1)
Quarter: 2021Q3

REPORT INFORMATION
  Report Type: Other
  Country: CN (occurrence: CN)
  Receive Date: 20210713
  Receipt Date: 20210713
  Transmission Date: 20211014
  Serious: Yes (Other)
  Sender: FDA-Public Use
  Company Number: CN-ROCHE-2864144

PATIENT

DRUGS (2)
  1. BEVACIZUMAB. [Suspect]
     Active Substance: BEVACIZUMAB
     Indication: GLIOMA
     Route: 065
  2. TEMOZOLAMIDE [Suspect]
     Active Substance: TEMOZOLOMIDE
     Indication: GLIOMA
     Route: 065

REACTIONS (10)
  - Hypertension [Unknown]
  - Headache [Unknown]
  - Anaemia [Unknown]
  - Thrombocytopenia [Unknown]
  - Fatigue [Unknown]
  - Lymphopenia [Unknown]
  - Neutropenia [Unknown]
  - Seizure [Unknown]
  - Nausea [Unknown]
  - Vomiting [Unknown]
